FAERS Safety Report 24528886 (Version 1)
Quarter: 2024Q4

REPORT INFORMATION
  Report Type: Spontaneous
  Country: CN (occurrence: CN)
  Receive Date: 20241021
  Receipt Date: 20241021
  Transmission Date: 20250115
  Serious: Yes (Hospitalization)
  Sender: AMGEN
  Company Number: CN-AMGEN-CHNSP2024206451

PATIENT
  Age: 39 Year
  Sex: Female
  Weight: 86 kg

DRUGS (3)
  1. REPATHA [Suspect]
     Active Substance: EVOLOCUMAB
     Indication: Hyperlipidaemia
     Dosage: 140 MILLIGRAM, Q2WK
     Route: 058
     Dates: start: 20240926, end: 20241003
  2. BICYCLOL [Concomitant]
     Active Substance: BICYCLOL
     Indication: Transaminases increased
     Dosage: 50 MILLIGRAM, TID
     Route: 048
     Dates: start: 20240926, end: 20241003
  3. METFORMIN HYDROCHLORIDE [Concomitant]
     Active Substance: METFORMIN HYDROCHLORIDE
     Indication: Blood glucose increased
     Dosage: 0.25 GRAM, BID
     Route: 048
     Dates: start: 20240926, end: 20241003

REACTIONS (1)
  - Dermatitis [Recovering/Resolving]

NARRATIVE: CASE EVENT DATE: 20241001
